FAERS Safety Report 7567274 (Version 3)
Quarter: 2012Q4

REPORT INFORMATION
  Report Type: Spontaneous
  Country: NL (occurrence: None)
  Receive Date: 20100819
  Receipt Date: 20121123
  Transmission Date: 20130627
  Serious: Yes (Hospitalization, Other)
  Sender: FDA-Public Use
  Company Number: 2010AP001702

PATIENT
  Age: 62 Year
  Sex: Female

DRUGS (2)
  1. OMEPRAZOLE [Suspect]
     Indication: BARRETT^S OESOPHAGUS
     Dosage: 40 MG;QD
  2. RABEPRAZOLE SODIUM [Suspect]
     Indication: BARRETT^S OESOPHAGUS

REACTIONS (6)
  - HYPOMAGNESAEMIA [None]
  - HYPOKALAEMIA [None]
  - HYPOCALCAEMIA [None]
  - DIARRHOEA [None]
  - ELECTROCARDIOGRAM ST SEGMENT DEPRESSION [None]
  - ELECTROCARDIOGRAM QT PROLONGED [None]
